FAERS Safety Report 6335179-8 (Version None)
Quarter: 2009Q3

REPORT INFORMATION
  Report Type: 
  Country: None (occurrence: None)
  Receive Date: 20090831
  Receipt Date: 20090825
  Transmission Date: 20100115
  Serious: No
  Sender: FDA-Public Use
  Company Number: US-B.I. PHARMACEUTICALS,INC./RIDGEFIELD-2006-BP-07555PF

PATIENT
  Sex: Male
  Weight: 68.95 kg

DRUGS (10)
  1. MIRAPEX [Suspect]
     Indication: PARKINSON'S DISEASE
     Route: 048
     Dates: start: 20020429, end: 20051001
  2. REQUIP [Concomitant]
     Indication: PARKINSON'S DISEASE
     Dosage: 6 MG
     Dates: start: 20020101
  3. SINEMET [Concomitant]
     Indication: PARKINSON'S DISEASE
     Dates: start: 20020301
  4. COMTAN [Concomitant]
     Indication: PARKINSON'S DISEASE
     Dates: start: 20030801
  5. STALEVO 100 [Concomitant]
     Indication: PARKINSON'S DISEASE
     Dosage: 400 MG
     Dates: start: 20040401
  6. AMBIEN [Concomitant]
     Dates: start: 20040201
  7. LIPITOR [Concomitant]
     Indication: BLOOD CHOLESTEROL INCREASED
  8. FLOMAX [Concomitant]
     Dates: end: 20040101
  9. FLEXERIL [Concomitant]
  10. PAXIL [Concomitant]

REACTIONS (6)
  - ABDOMINAL DISCOMFORT [None]
  - ANXIETY [None]
  - DEPRESSION [None]
  - MENTAL IMPAIRMENT [None]
  - OBSESSIVE-COMPULSIVE DISORDER [None]
  - PATHOLOGICAL GAMBLING [None]
